FAERS Safety Report 7356764-0 (Version None)
Quarter: 2011Q1

REPORT INFORMATION
  Report Type: 
  Country: None (occurrence: None)
  Receive Date: 20110316
  Receipt Date: 20090914
  Transmission Date: 20110831
  Serious: Yes (Other)
  Sender: FDA-Public Use
  Company Number: PHHY2009DE67524

PATIENT
  Sex: Female

DRUGS (1)
  1. EXTAVIA [Suspect]
     Dosage: UNK
     Route: 058
     Dates: start: 20090728

REACTIONS (3)
  - DYSPLASIA [None]
  - WHITE BLOOD CELL COUNT DECREASED [None]
  - MULTIPLE SCLEROSIS RELAPSE [None]
